FAERS Safety Report 19806201 (Version 1)
Quarter: 2021Q3

REPORT INFORMATION
  Report Type: Spontaneous
  Country: US (occurrence: US)
  Receive Date: 20210908
  Receipt Date: 20210908
  Transmission Date: 20211014
  Serious: No
  Sender: FDA-Public Use
  Company Number: US-PFIZER INC-202101036995

PATIENT
  Age: 9 Year
  Sex: Female
  Weight: 33.11 kg

DRUGS (1)
  1. GENOTROPIN [Suspect]
     Active Substance: SOMATROPIN
     Dosage: 1.6 MG, DAILY (DAILY EXCEPT FOR SUNDAYS)

REACTIONS (5)
  - Wrong technique in device usage process [Unknown]
  - Device information output issue [Unknown]
  - Poor quality device used [Unknown]
  - Device leakage [Unknown]
  - Drug dose omission by device [Unknown]

NARRATIVE: CASE EVENT DATE: 202108
